FAERS Safety Report 6426380-3 (Version None)
Quarter: 2009Q4

REPORT INFORMATION
  Report Type: 
  Country: None (occurrence: None)
  Receive Date: 20091104
  Receipt Date: 20091026
  Transmission Date: 20100525
  Serious: Yes (Other)
  Sender: FDA-Public Use
  Company Number: US-ABBOTT-09P-163-0604822-00

PATIENT
  Sex: Male
  Weight: 69.008 kg

DRUGS (3)
  1. LUPRON DEPOT [Suspect]
     Indication: PROSTATE CANCER
     Dates: start: 20000101
  2. LISINOPRIL [Concomitant]
     Indication: HYPERTENSION
  3. TRIAMTERENE AND HYDROCHLOROTHIAZIDE [Concomitant]
     Indication: HYPERTENSION

REACTIONS (9)
  - BLOOD POTASSIUM ABNORMAL [None]
  - DIZZINESS [None]
  - FATIGUE [None]
  - HOT FLUSH [None]
  - HYPERTENSION [None]
  - MALAISE [None]
  - PAIN IN EXTREMITY [None]
  - VISION BLURRED [None]
  - VOMITING [None]
